FAERS Safety Report 5448510-2 (Version None)
Quarter: 2007Q3

REPORT INFORMATION
  Report Type: 
  Country: None (occurrence: None)
  Receive Date: 20070911
  Receipt Date: 20070830
  Transmission Date: 20080115
  Serious: Yes (Hospitalization)
  Sender: FDA-Public Use
  Company Number: US-KINGPHARMUSA00001-K200701113

PATIENT

DRUGS (7)
  1. ALTACE [Suspect]
     Dosage: 2.5 MG, QD
     Route: 048
     Dates: start: 20070614, end: 20070621
  2. CLOPIDOGREL [Suspect]
     Dosage: UNK, QD
     Route: 048
     Dates: start: 20070614, end: 20070621
  3. ABCIXIMAB [Suspect]
     Dosage: 7.6 ML, QD
     Route: 042
     Dates: start: 20070613, end: 20070613
  4. ASPIRIN [Concomitant]
     Dosage: 75 MG, UNK
     Route: 048
     Dates: start: 20070613
  5. LANSOPRAZOLE [Concomitant]
     Indication: PROPHYLAXIS AGAINST GASTROINTESTINAL ULCER
     Dosage: 15 MG, UNK
     Route: 048
     Dates: start: 20070614
  6. METOPROLOL SUCCINATE [Concomitant]
     Dosage: 25 MG, UNK
     Route: 048
     Dates: start: 20070614
  7. SIMVASTATIN [Concomitant]
     Dosage: 40 MG, UNK
     Route: 048
     Dates: start: 20070614

REACTIONS (2)
  - HAEMATURIA [None]
  - THROMBOCYTOPENIA [None]
